FAERS Safety Report 8319915-7 (Version None)
Quarter: 2012Q2

REPORT INFORMATION
  Report Type: 
  Country: None (occurrence: None)
  Receive Date: 20120427
  Receipt Date: 20120425
  Transmission Date: 20120825
  Serious: No
  Sender: FDA-Public Use
  Company Number: CHPA2012US009106

PATIENT
  Sex: Female

DRUGS (1)
  1. PREVACID [Suspect]
     Indication: DYSPEPSIA
     Dosage: 15 MG, QD
     Route: 048
     Dates: start: 20120101

REACTIONS (3)
  - THERAPEUTIC RESPONSE UNEXPECTED [None]
  - DISEASE RECURRENCE [None]
  - OFF LABEL USE [None]
